FAERS Safety Report 8877647 (Version 1)
Quarter: 2012Q4

REPORT INFORMATION
  Report Type: Spontaneous
  Country: US (occurrence: None)
  Receive Date: 20121031
  Receipt Date: 20121031
  Transmission Date: 20130627
  Serious: No
  Sender: FDA-Public Use
  Company Number: None

PATIENT
  Sex: Female

DRUGS (1)
  1. MIRENA IUD [Suspect]
     Indication: BIRTH CONTROL
     Dates: start: 200907, end: 200909

REACTIONS (5)
  - Device dislocation [None]
  - Uterine perforation [None]
  - Liver injury [None]
  - Renal disorder [None]
  - Liver disorder [None]
